FAERS Safety Report 21438934 (Version 1)
Quarter: 2022Q4

REPORT INFORMATION
  Report Type: Report from Study
  Country: MX (occurrence: MX)
  Receive Date: 20221011
  Receipt Date: 20221011
  Transmission Date: 20230113
  Serious: Yes (Disabling)
  Sender: FDA-Public Use
  Company Number: MX-NOVARTISPH-NVSC2022MX228826

PATIENT
  Sex: Female
  Weight: 78 kg

DRUGS (1)
  1. ENTRESTO [Suspect]
     Active Substance: SACUBITRIL\VALSARTAN
     Indication: Hypertension
     Dosage: 1 DOSAGE FORM BID (EVERY 12 HOURS)
     Route: 048
     Dates: start: 202011

REACTIONS (3)
  - Neuropathic arthropathy [Unknown]
  - Mobility decreased [Unknown]
  - Product use in unapproved indication [Unknown]
